FAERS Safety Report 5361056-5 (Version None)
Quarter: 2007Q2

REPORT INFORMATION
  Report Type: 
  Country: None (occurrence: None)
  Receive Date: 20070618
  Receipt Date: 20070606
  Transmission Date: 20071010
  Serious: Yes (Other)
  Sender: FDA-Public Use
  Company Number: US-PFIZER INC-2007047848

PATIENT
  Sex: Female
  Weight: 69.1 kg

DRUGS (8)
  1. CHANTIX [Suspect]
     Indication: SMOKING CESSATION THERAPY
     Dates: start: 20070422, end: 20070605
  2. ALL OTHER THERAPEUTIC PRODUCTS [Interacting]
  3. PAXIL CR [Concomitant]
  4. VALIUM [Concomitant]
  5. TOPROL-XL [Concomitant]
  6. OXYBUTYNIN CHLORIDE [Concomitant]
  7. PRAVASTATIN [Concomitant]
  8. MULTIVITAMIN [Concomitant]

REACTIONS (3)
  - DRUG INTERACTION [None]
  - HYPERSOMNIA [None]
  - LOSS OF CONSCIOUSNESS [None]
